FAERS Safety Report 6883419-9 (Version None)
Quarter: 2010Q3

REPORT INFORMATION
  Report Type: 
  Country: None (occurrence: None)
  Receive Date: 20100729
  Receipt Date: 20100722
  Transmission Date: 20110219
  Serious: Yes (Other)
  Sender: FDA-Public Use
  Company Number: US-SANOFI-AVENTIS-2010SA031603

PATIENT
  Age: 58 Year
  Sex: Female
  Weight: 65.7 kg

DRUGS (13)
  1. LANTUS [Suspect]
     Indication: TYPE 2 DIABETES MELLITUS
     Dosage: DOSE:16 UNIT(S)
     Route: 058
     Dates: start: 20000101
  2. LANTUS [Suspect]
     Dosage: DOSE:18 UNIT(S)
     Route: 058
  3. OPTICLICK [Suspect]
     Indication: TYPE 2 DIABETES MELLITUS
     Dates: start: 20070101
  4. CYMBALTA [Concomitant]
     Indication: DEPRESSION
  5. ABILIFY [Concomitant]
  6. METHADONE HCL [Concomitant]
  7. XANAX [Concomitant]
     Indication: ANXIETY
  8. LASIX [Concomitant]
     Indication: FLUID IMBALANCE
  9. ZOLPIDEM [Concomitant]
     Indication: INSOMNIA
  10. IBUPROFEN TABLETS [Concomitant]
  11. VITAMIN TAB [Concomitant]
  12. ASPIRIN [Concomitant]
  13. NOVOLOG [Concomitant]
     Dosage: SLIDING SCALE

REACTIONS (3)
  - BLINDNESS [None]
  - RETINAL DETACHMENT [None]
  - VISUAL IMPAIRMENT [None]
